FAERS Safety Report 6313627-7 (Version None)
Quarter: 2009Q3

REPORT INFORMATION
  Report Type: 
  Country: None (occurrence: None)
  Receive Date: 20090818
  Receipt Date: 20090807
  Transmission Date: 20100115
  Serious: Yes (Hospitalization)
  Sender: FDA-Public Use
  Company Number: BE-WYE-H06166308

PATIENT
  Sex: Male
  Weight: 95 kg

DRUGS (9)
  1. RAPAMUNE [Suspect]
     Indication: PROPHYLAXIS AGAINST TRANSPLANT REJECTION
     Route: 048
     Dates: start: 20080722
  2. EUSAPRIM [Concomitant]
     Indication: INFECTION PROPHYLAXIS
     Route: 048
     Dates: start: 20080625
  3. BEFORTE [Concomitant]
     Indication: MEDICAL DIET
     Route: 048
     Dates: start: 20080626
  4. ADVIL [Suspect]
     Indication: BACK PAIN
  5. ELTHYRONE [Concomitant]
     Indication: HYPOTHYROIDISM
     Route: 048
     Dates: start: 20080718
  6. ASAFLOW [Concomitant]
     Indication: ANALGESIA
     Route: 048
     Dates: start: 20080810
  7. ZALDIAR [Concomitant]
     Indication: BACK PAIN
     Route: 048
     Dates: start: 20080916, end: 20080928
  8. PROGRAF [Concomitant]
     Indication: PROPHYLAXIS AGAINST TRANSPLANT REJECTION
     Route: 048
     Dates: start: 20080721
  9. CACIT VITAMINE D3 [Concomitant]
     Indication: MINERAL SUPPLEMENTATION
     Dosage: 1 GRAIN EVERY 1 DAY
     Route: 048
     Dates: start: 20080621

REACTIONS (1)
  - BLOOD CREATININE ABNORMAL [None]
